FAERS Safety Report 8367676-8 (Version None)
Quarter: 2012Q2

REPORT INFORMATION
  Report Type: 
  Country: None (occurrence: None)
  Receive Date: 20120517
  Receipt Date: 20120510
  Transmission Date: 20120825
  Serious: Yes (Hospitalization)
  Sender: FDA-Public Use
  Company Number: US-GLAXOSMITHKLINE-A0881838A

PATIENT
  Age: 51 Year
  Sex: Male
  Weight: 124.1 kg

DRUGS (8)
  1. AVANDIA [Suspect]
     Indication: DIABETES MELLITUS
     Dosage: 4MG PER DAY
     Route: 048
     Dates: start: 20010601, end: 20010101
  2. NEURONTIN [Concomitant]
  3. LIPITOR [Concomitant]
  4. PROVENTIL [Concomitant]
  5. ATACAND [Concomitant]
  6. GLUCOPHAGE [Concomitant]
  7. LEVOXYL [Concomitant]
  8. SEREVENT [Concomitant]

REACTIONS (2)
  - CARDIAC DISORDER [None]
  - MYOCARDIAL INFARCTION [None]
